FAERS Safety Report 10351143 (Version 3)
Quarter: 2014Q3

REPORT INFORMATION
  Report Type: Spontaneous
  Country: FR (occurrence: FR)
  Receive Date: 20140730
  Receipt Date: 20140814
  Transmission Date: 20150326
  Serious: Yes (Hospitalization)
  Sender: FDA-Public Use
  Company Number: FR-SA-2014SA100500

PATIENT
  Age: 88 Year
  Sex: Male

DRUGS (15)
  1. CORDARONE [Suspect]
     Active Substance: AMIODARONE HYDROCHLORIDE
     Indication: ATRIAL FIBRILLATION
     Dosage: START DATE: LONG COURSE, DOSE: 1 DF, 5 IN 7 DAY
     Route: 048
     Dates: end: 20140602
  2. IMOVANE [Suspect]
     Active Substance: ZOPICLONE
     Indication: INSOMNIA
     Dosage: START DATE: LONG COURSE, DOSE: 1 DF, 1 IN 1 DAY
     Route: 048
     Dates: end: 20140531
  3. PARACETAMOL [Suspect]
     Active Substance: ACETAMINOPHEN
     Indication: PAIN
     Dosage: START DATE: LONG COURSE
     Route: 048
     Dates: end: 20140530
  4. PREVISCAN [Suspect]
     Active Substance: FLUINDIONE
     Indication: ATRIAL FIBRILLATION
     Dosage: PREVISCAN   20  MG, COMPRIME SECABLE, DOSE:  0.5 DF (0.5 DF, 1  IN  1   JOUR(S))
     Route: 048
     Dates: end: 20140601
  5. SEROPLEX [Suspect]
     Active Substance: ESCITALOPRAM OXALATE
     Indication: DEPRESSED MOOD
     Route: 048
     Dates: end: 20140602
  6. TRANSIPEG [Concomitant]
     Active Substance: POLYETHYLENE GLYCOL 3350
  7. TAHOR [Suspect]
     Active Substance: ATORVASTATIN CALCIUM
     Indication: INFARCTION
     Dosage: START DATE: LONG COURSE, TAHOR 10 MG, FILM COATED TABLET ,  1  DF    (1  DF , 1   IN  1  DAY)
     Route: 048
     Dates: end: 20140603
  8. TAREG [Suspect]
     Active Substance: VALSARTAN
     Indication: HYPERTENSION
     Dosage: START DATE: LONG COURSE
     Route: 048
     Dates: end: 20140604
  9. DOLIPRANE [Concomitant]
     Active Substance: ACETAMINOPHEN
  10. LASILIX [Suspect]
     Active Substance: FUROSEMIDE
     Indication: CARDIAC FAILURE
     Route: 048
     Dates: start: 20140529, end: 20140604
  11. OXAZEPAM. [Concomitant]
     Active Substance: OXAZEPAM
  12. LANSOYL [Concomitant]
     Active Substance: MINERAL OIL
  13. VOLTARENE [Concomitant]
     Active Substance: DICLOFENAC SODIUM
  14. DIFFU K [Suspect]
     Active Substance: POTASSIUM CHLORIDE
     Indication: HYPOKALAEMIA
     Dosage: DOSE: 1 DF, 3 IN 1 HOUR
     Route: 048
     Dates: start: 20140530, end: 20140602
  15. OXAZEPAM. [Concomitant]
     Active Substance: OXAZEPAM

REACTIONS (2)
  - International normalised ratio increased [Recovered/Resolved]
  - Hepatitis [Recovering/Resolving]

NARRATIVE: CASE EVENT DATE: 20140602
